FAERS Safety Report 5057046-2 (Version None)
Quarter: 2006Q2

REPORT INFORMATION
  Report Type: 
  Country: None (occurrence: None)
  Receive Date: 20060622
  Receipt Date: 20060421
  Transmission Date: 20061013
  Serious: Yes (Other)
  Sender: FDA-Public Use
  Company Number: US-JNJFOC-20060405461

PATIENT
  Age: 49 Year
  Sex: Male
  Weight: 68.0396 kg

DRUGS (2)
  1. DURAGESIC-100 [Suspect]
     Indication: PAIN
     Dosage: 25 UG/HR, 1 IN 72 HOUR
     Dates: start: 20060404, end: 20060417
  2. PERCOCET [Concomitant]

REACTIONS (9)
  - ACCIDENTAL OVERDOSE [None]
  - HEADACHE [None]
  - HYPERTENSION [None]
  - LETHARGY [None]
  - LOSS OF CONSCIOUSNESS [None]
  - PHOTOPHOBIA [None]
  - TUNNEL VISION [None]
  - VISION BLURRED [None]
  - VOMITING [None]
